FAERS Safety Report 16109010 (Version 1)
Quarter: 2019Q1

REPORT INFORMATION
  Report Type: Spontaneous
  Country: US (occurrence: US)
  Receive Date: 20190323
  Receipt Date: 20190323
  Transmission Date: 20190418
  Serious: No
  Sender: FDA-Public Use
  Company Number: US-THERAPEUTICSMD-2019TMD00017

PATIENT
  Sex: Female
  Weight: 61.22 kg

DRUGS (10)
  1. IMVEXXY [Suspect]
     Active Substance: ESTRADIOL
     Indication: VAGINAL DISORDER
     Dosage: 4 ?G, 1X/DAY IN THE EVENING (AT MOST ONE HOUR BEFORE BED)
     Route: 067
     Dates: start: 2018, end: 201812
  2. QUAZEPAM. [Concomitant]
     Active Substance: QUAZEPAM
  3. BENICAR [Concomitant]
     Active Substance: OLMESARTAN MEDOXOMIL
  4. ALBUTEROL INHALER [Concomitant]
     Active Substance: ALBUTEROL
  5. DRONABINOL. [Concomitant]
     Active Substance: DRONABINOL
  6. ATORVASTATIN [Concomitant]
     Active Substance: ATORVASTATIN
  7. FLUTICASONE. [Concomitant]
     Active Substance: FLUTICASONE
  8. PANTOPRAZOLE [Concomitant]
     Active Substance: PANTOPRAZOLE
  9. DESVENLAFAXINE. [Concomitant]
     Active Substance: DESVENLAFAXINE
  10. UNSPECIFIED MEMORY SUPPLEMENT [Concomitant]

REACTIONS (3)
  - Off label use [Recovered/Resolved]
  - Migraine [Recovered/Resolved]
  - Headache [Recovering/Resolving]

NARRATIVE: CASE EVENT DATE: 2018
